FAERS Safety Report 9288362 (Version 2)
Quarter: 2013Q2

REPORT INFORMATION
  Report Type: Spontaneous
  Country: GB (occurrence: None)
  Receive Date: 20130509
  Receipt Date: 20130514
  Transmission Date: 20140414
  Serious: Yes (Life-Threatening, Hospitalization)
  Sender: FDA-Public Use
  Company Number: AUR-APL-2013-03759

PATIENT
  Age: 76 Year
  Sex: Female
  Weight: 56 kg

DRUGS (17)
  1. BISOPROLOL [Suspect]
     Indication: ACUTE MYOCARDIAL INFARCTION
     Dosage: 1 IN 1 D?
     Route: 048
     Dates: start: 20130312, end: 20130315
  2. BRILIQUE [Suspect]
     Indication: ACUTE MYOCARDIAL INFARCTION
     Dosage: 90 MG, 2 IN 1 D
     Route: 048
  3. DONEPEZIL [Suspect]
     Indication: DEMENTIA ALZHEIMER^S TYPE
     Dosage: 1 IN 1 D
     Route: 048
     Dates: end: 20130317
  4. AMLODIPINE (AMLODIPINE) [Concomitant]
  5. ASPIRIN [Concomitant]
  6. ATORVASTATIN (ATORVASTATIN) [Concomitant]
  7. BENDROFLUMETHIAZIDE (BENDROFLUMETHIZIDE) [Concomitant]
  8. ENOXAPARIN (ENOXAPARIN) [Concomitant]
  9. FERROUS SULPHATE (FERROUS SULPHATE) [Concomitant]
  10. FOLIC ACID (FOLIC ACID) [Concomitant]
  11. GLYCERYL TRINITRATE (GLYCERYL TRINITRATE) [Concomitant]
  12. LEVOTHYROXINE (LEVOTHYROXINE) [Concomitant]
  13. NITROFURANTOIN [Concomitant]
  14. OMACOR [Concomitant]
  15. PARACETAMOL (PARACETAMOL) [Concomitant]
  16. RAMIPRIL (RAMIPRIL) [Concomitant]
  17. SODIUM BICARBONATE (SODIUM BICARBONATE) [Concomitant]

REACTIONS (9)
  - Atrioventricular block first degree [None]
  - Syncope [None]
  - Unresponsive to stimuli [None]
  - Blood chloride decreased [None]
  - Blood sodium decreased [None]
  - White blood cell count increased [None]
  - Bradycardia [None]
  - Fall [None]
  - Neutrophil count increased [None]
